FAERS Safety Report 22346702 (Version 2)
Quarter: 2023Q2

REPORT INFORMATION
  Report Type: Spontaneous
  Country: US (occurrence: None)
  Receive Date: 20230520
  Receipt Date: 20230526
  Transmission Date: 20230722
  Serious: Yes (Other)
  Sender: FDA-Public Use
  Company Number: 2023A116577

PATIENT
  Age: 45 Year
  Sex: Male
  Weight: 92 kg

DRUGS (19)
  1. BRILINTA [Suspect]
     Active Substance: TICAGRELOR
     Indication: Cardiovascular disorder
     Dosage: UNK MG
     Route: 048
     Dates: start: 20201206
  2. LISINOPRIL [Suspect]
     Active Substance: LISINOPRIL
     Route: 048
     Dates: start: 20201206
  3. OMEPRAZOLE [Suspect]
     Active Substance: OMEPRAZOLE
     Route: 048
     Dates: start: 20210111
  4. ROSUVASTATIN [Suspect]
     Active Substance: ROSUVASTATIN
     Route: 048
     Dates: start: 20201206
  5. DAPAGLIFLOZIN [Suspect]
     Active Substance: DAPAGLIFLOZIN
     Route: 048
     Dates: start: 20210111
  6. PELACARSEN [Suspect]
     Active Substance: PELACARSEN
     Indication: Cardiovascular disorder
     Route: 058
     Dates: start: 20220324
  7. PLACEBO [Suspect]
     Active Substance: UNSPECIFIED INGREDIENT
     Indication: Cardiovascular disorder
     Route: 058
     Dates: start: 20220601
  8. ICOSAPENT ETHYL [Concomitant]
     Active Substance: ICOSAPENT ETHYL
  9. AMLODIPINE [Concomitant]
     Active Substance: AMLODIPINE BESYLATE
     Dates: start: 20201206
  10. ISOSORBIDE MONONITRATE [Concomitant]
     Active Substance: ISOSORBIDE MONONITRATE
  11. METFORMIN [Concomitant]
     Active Substance: METFORMIN HYDROCHLORIDE
     Dates: start: 20201206
  12. NITROGLYCERIN [Concomitant]
     Active Substance: NITROGLYCERIN
     Dates: start: 20201210
  13. VITAMIN E [Concomitant]
     Active Substance: .ALPHA.-TOCOPHEROL
     Dates: start: 2020
  14. ASCORBIC ACID [Concomitant]
     Active Substance: ASCORBIC ACID
     Dates: start: 2020
  15. ASPIRIN [Concomitant]
     Active Substance: ASPIRIN
     Dates: start: 20201211
  16. CARVEDILOL [Concomitant]
     Active Substance: CARVEDILOL
     Dates: start: 20201206
  17. CHOLECALCIFEROL [Concomitant]
     Active Substance: CHOLECALCIFEROL
     Dates: start: 20201206
  18. EZETIMIBE [Concomitant]
     Active Substance: EZETIMIBE
     Dates: start: 20211126
  19. FAMOTIDINE [Concomitant]
     Active Substance: FAMOTIDINE
     Dates: start: 20210111

REACTIONS (9)
  - Abdominal pain [Recovered/Resolved]
  - Haematochezia [Recovered/Resolved]
  - Chest pain [Unknown]
  - Obstructive sleep apnoea syndrome [Unknown]
  - Colorectal adenoma [Unknown]
  - Melaena [Unknown]
  - COVID-19 [Unknown]
  - Blood glucose abnormal [Unknown]
  - Urine analysis abnormal [Unknown]

NARRATIVE: CASE EVENT DATE: 20200101
